FAERS Safety Report 10969589 (Version 2)
Quarter: 2015Q2

REPORT INFORMATION
  Report Type: Spontaneous
  Country: US (occurrence: US)
  Receive Date: 20150331
  Receipt Date: 20150417
  Transmission Date: 20150821
  Serious: Yes (Hospitalization)
  Sender: FDA-Public Use
  Company Number: US-BIOGENIDEC-2015BI039440

PATIENT
  Age: 57 Year
  Sex: Male

DRUGS (7)
  1. MINOCYCLINE HCI [Concomitant]
  2. SULFAMETHOXAZOLE - TRIMETHOPRIM [Concomitant]
     Active Substance: SULFAMETHOXAZOLE\TRIMETHOPRIM
  3. CARBAMAZEPINE. [Concomitant]
     Active Substance: CARBAMAZEPINE
  4. LISINOPRIL. [Concomitant]
     Active Substance: LISINOPRIL
  5. TECFIDERA [Suspect]
     Active Substance: DIMETHYL FUMARATE
     Indication: MULTIPLE SCLEROSIS
     Route: 048
     Dates: start: 20140314
  6. CLONAZEPAM. [Concomitant]
     Active Substance: CLONAZEPAM
  7. TRENTAL [Concomitant]
     Active Substance: PENTOXIFYLLINE

REACTIONS (3)
  - Immobile [Unknown]
  - Peripheral vascular disorder [Unknown]
  - Decubitus ulcer [Unknown]
